FAERS Safety Report 5460708-6 (Version None)
Quarter: 2007Q3

REPORT INFORMATION
  Report Type: 
  Country: None (occurrence: None)
  Receive Date: 20070918
  Receipt Date: 20070903
  Transmission Date: 20080115
  Serious: Yes (Other)
  Sender: FDA-Public Use
  Company Number: B0486923A

PATIENT
  Age: 4 Year
  Sex: Female

DRUGS (5)
  1. BUSULPHAN (FORMULATION UNKNOWN) (BUSULFAN) (GENERIC) [Suspect]
     Indication: BONE MARROW CONDITIONING REGIMEN
     Dosage: 5 MG/KG FOUR TIMES PER DAY / UNKNOWN
  2. CYCLOPHOSPHAMIDE [Suspect]
     Indication: BONE MARROW CONDITIONING REGIMEN
     Dosage: 40 MG/KG / FOUR TIMES PER DAY / UNKNOWN
  3. ANTITHYMOCYTE IG (FORMULATION UNKNOWN) (ANTITHYMOCYTE IG) [Suspect]
     Indication: BONE MARROW CONDITIONING REGIMEN
     Dosage: 2.5 MG/KG / FOUR TIMES PER DAY / UNKNOW
  4. CYCLOSPORINE [Concomitant]
  5. METHOTREXATE [Concomitant]

REACTIONS (1)
  - THROMBOTIC MICROANGIOPATHY [None]
